FAERS Safety Report 4927283-3 (Version None)
Quarter: 2006Q1

REPORT INFORMATION
  Report Type: 
  Country: None (occurrence: None)
  Receive Date: 20060228
  Receipt Date: 20050511
  Transmission Date: 20060701
  Serious: No
  Sender: FDA-Public Use
  Company Number: US-GLAXOSMITHKLINE-A0558136A

PATIENT
  Sex: Female

DRUGS (12)
  1. IMITREX [Suspect]
     Indication: MIGRAINE
     Route: 058
  2. ENBREL [Concomitant]
  3. PREDNISONE [Concomitant]
  4. FOLIC ACID [Concomitant]
  5. ACTONEL [Concomitant]
  6. TYLENOL W/ CODEINE NO. 4 [Concomitant]
  7. MOBID [Concomitant]
  8. PERIOSTAT [Concomitant]
  9. PROGESTERONE [Concomitant]
  10. ESTRADERM [Concomitant]
  11. METHOTREXATE [Concomitant]
  12. STADOL [Concomitant]

REACTIONS (2)
  - CONTUSION [None]
  - HEART RATE IRREGULAR [None]
